FAERS Safety Report 9157746 (Version 2)
Quarter: 2013Q1

REPORT INFORMATION
  Report Type: Spontaneous
  Country: US (occurrence: US)
  Receive Date: 20130312
  Receipt Date: 20130315
  Transmission Date: 20140127
  Serious: Yes (Hospitalization)
  Sender: FDA-Public Use
  Company Number: US-GILEAD-2013-0071316

PATIENT
  Age: 51 Year
  Sex: Female

DRUGS (2)
  1. LETAIRIS [Suspect]
     Indication: PULMONARY ARTERIAL HYPERTENSION
     Dosage: 10 MG, UNK
     Route: 048
     Dates: start: 20110908
  2. LETAIRIS [Suspect]
     Indication: SICKLE CELL ANAEMIA

REACTIONS (3)
  - Sickle cell anaemia with crisis [Unknown]
  - Pain [Unknown]
  - Dyspnoea [Unknown]
